FAERS Safety Report 4822260-5 (Version None)
Quarter: 2005Q4

REPORT INFORMATION
  Report Type: 
  Country: None (occurrence: None)
  Receive Date: 20051107
  Receipt Date: 20051102
  Transmission Date: 20060501
  Serious: Yes (Hospitalization)
  Sender: FDA-Public Use
  Company Number: NZ-MERCK-0511NZL00022

PATIENT
  Age: 52 Year
  Sex: Male

DRUGS (4)
  1. ZOCOR [Suspect]
     Indication: BLOOD CHOLESTEROL INCREASED
     Route: 048
     Dates: start: 20030101
  2. ASPIRIN [Concomitant]
     Route: 065
  3. ZOPICLONE [Concomitant]
     Route: 065
  4. METOPROLOL TARTRATE [Concomitant]
     Route: 065
     Dates: start: 20030101, end: 20030601

REACTIONS (3)
  - CARDIAC DISORDER [None]
  - MYALGIA [None]
  - SNORING [None]
